FAERS Safety Report 4877374-0 (Version None)
Quarter: 2006Q1

REPORT INFORMATION
  Report Type: 
  Country: None (occurrence: None)
  Receive Date: 20060111
  Receipt Date: 20050310
  Transmission Date: 20060701
  Serious: No
  Sender: FDA-Public Use
  Company Number: CA-BOEHRINGER INGELHEIM PHARMACEUTICALS, INC.-2005-CN-00527CN

PATIENT
  Sex: Female

DRUGS (2)
  1. ATROVENT [Suspect]
     Indication: COUGH
     Route: 055
  2. PULMICORT [Concomitant]

REACTIONS (3)
  - INSOMNIA [None]
  - TACHYCARDIA [None]
  - TREMOR [None]
